FAERS Safety Report 9656067 (Version 3)
Quarter: 2014Q1

REPORT INFORMATION
  Report Type: Spontaneous
  Country: IT (occurrence: IT)
  Receive Date: 20131030
  Receipt Date: 20140307
  Transmission Date: 20141002
  Serious: Yes (Other)
  Sender: FDA-Public Use
  Company Number: IT-JNJFOC-20131015016

PATIENT
  Sex: 0

DRUGS (2)
  1. INFLIXIMAB, RECOMBINANT [Suspect]
     Indication: BEHCET^S SYNDROME
     Route: 042
  2. METHYLPREDNISOLONE [Concomitant]
     Dosage: 500-1000MG FOR 3 CONSECUTIVE DAYS
     Route: 042

REACTIONS (2)
  - Myocarditis [Unknown]
  - Off label use [Unknown]
